FAERS Safety Report 25887013 (Version 1)
Quarter: 2025Q4

REPORT INFORMATION
  Report Type: Spontaneous
  Country: US (occurrence: US)
  Receive Date: 20251006
  Receipt Date: 20251006
  Transmission Date: 20260117
  Serious: No
  Sender: SANOFI AVENTIS
  Company Number: US-SA-2025SA295147

PATIENT
  Sex: Male

DRUGS (5)
  1. KEVZARA [Suspect]
     Active Substance: SARILUMAB
     Indication: Polymyalgia rheumatica
     Dosage: 200 MG, QOW
     Route: 058
  2. BRIMONIDINE TARTRATE;TIMOLOL [Concomitant]
  3. LATANOPROST [Concomitant]
     Active Substance: LATANOPROST
  4. PREDNISONE [Concomitant]
     Active Substance: PREDNISONE
  5. ALLOPURINOL [Concomitant]
     Active Substance: ALLOPURINOL

REACTIONS (1)
  - Dysphonia [Unknown]
